FAERS Safety Report 4333910-4 (Version None)
Quarter: 2004Q2

REPORT INFORMATION
  Report Type: 
  Country: None (occurrence: None)
  Receive Date: 20040407
  Receipt Date: 20031118
  Transmission Date: 20050107
  Serious: Yes (Hospitalization)
  Sender: FDA-Public Use
  Company Number: PL-BRISTOL-MYERS SQUIBB COMPANY-12438255

PATIENT
  Age: 63 Year
  Sex: Male

DRUGS (9)
  1. CISPLATIN [Suspect]
     Indication: NON-SMALL CELL LUNG CANCER
     Route: 042
     Dates: start: 20030723, end: 20030723
  2. PACLITAXEL [Suspect]
     Indication: NON-SMALL CELL LUNG CANCER
     Route: 042
     Dates: start: 20030723, end: 20030723
  3. MEGACE [Suspect]
     Indication: CACHEXIA
     Route: 048
     Dates: start: 20030725, end: 20030906
  4. MEGACE [Suspect]
     Dosage: 20 ML
     Route: 048
     Dates: start: 20030814
  5. THEOVENT [Concomitant]
     Indication: CHRONIC OBSTRUCTIVE AIRWAYS DISEASE
     Route: 055
     Dates: start: 20030626
  6. ATROVENT [Concomitant]
     Indication: CHRONIC OBSTRUCTIVE AIRWAYS DISEASE
     Route: 055
     Dates: start: 20030725
  7. SEREVENT [Concomitant]
     Indication: CHRONIC OBSTRUCTIVE AIRWAYS DISEASE
     Route: 055
     Dates: start: 20030703
  8. TRAMADOL HCL [Concomitant]
     Indication: PAIN
     Route: 048
     Dates: start: 20030725
  9. ALPRAZOLAM [Concomitant]
     Indication: DEPRESSION
     Route: 048
     Dates: start: 20030806

REACTIONS (2)
  - BLOOD POTASSIUM INCREASED [None]
  - CREATININE RENAL CLEARANCE DECREASED [None]
